FAERS Safety Report 8471444-6 (Version None)
Quarter: 2012Q2

REPORT INFORMATION
  Report Type: 
  Country: None (occurrence: None)
  Receive Date: 20120323
  Receipt Date: 20111003
  Transmission Date: 20120825
  Serious: Yes (Other)
  Sender: FDA-Public Use
  Company Number: 163-21880-11100325

PATIENT
  Age: 83 Year
  Sex: Female

DRUGS (7)
  1. LENALIDOMIDE [Suspect]
     Indication: MULTIPLE MYELOMA
     Dosage: 15 MG, DAILY X 21/28 DAYS, PO 10 MG, 1 IN 1 D, PO 10 MG, DAILY X 7 DAYS ON, 7 DAYS OFF, PO
     Route: 048
     Dates: start: 20100901
  2. LENALIDOMIDE [Suspect]
     Indication: MULTIPLE MYELOMA
     Dosage: 15 MG, DAILY X 21/28 DAYS, PO 10 MG, 1 IN 1 D, PO 10 MG, DAILY X 7 DAYS ON, 7 DAYS OFF, PO
     Route: 048
     Dates: start: 20110501, end: 20110901
  3. LENALIDOMIDE [Suspect]
     Indication: MULTIPLE MYELOMA
     Dosage: 15 MG, DAILY X 21/28 DAYS, PO 10 MG, 1 IN 1 D, PO 10 MG, DAILY X 7 DAYS ON, 7 DAYS OFF, PO
     Route: 048
     Dates: start: 20100701
  4. ANASTROZOLE (ANASTROZOLE) (UNKNOWN) [Concomitant]
  5. DIGOXIN [Concomitant]
  6. CLOPIDOGREL [Concomitant]
  7. CARVEDILOL [Concomitant]

REACTIONS (2)
  - NEUTROPHIL COUNT DECREASED [None]
  - DIARRHOEA [None]
